FAERS Safety Report 21896918 (Version 1)
Quarter: 2023Q1

REPORT INFORMATION
  Report Type: Spontaneous
  Country: US (occurrence: None)
  Receive Date: 20230121
  Receipt Date: 20230121
  Transmission Date: 20230418
  Serious: No
  Sender: FDA-Public Use
  Company Number: None

PATIENT
  Age: 69 Year
  Sex: Female
  Weight: 51.3 kg

DRUGS (4)
  1. MOLNUPIRAVIR [Suspect]
     Active Substance: MOLNUPIRAVIR
     Indication: COVID-19 treatment
     Dosage: FREQUENCY : TWICE A DAY;?
     Route: 048
     Dates: start: 20230119, end: 20230121
  2. FOSAMAX [Concomitant]
     Active Substance: ALENDRONATE SODIUM
  3. ZETIA [Concomitant]
     Active Substance: EZETIMIBE
  4. LIDODERM [Concomitant]
     Active Substance: LIDOCAINE

REACTIONS (1)
  - Rash [None]

NARRATIVE: CASE EVENT DATE: 20230121
